FAERS Safety Report 14524458 (Version 2)
Quarter: 2018Q4

REPORT INFORMATION
  Report Type: Spontaneous
  Country: US (occurrence: US)
  Receive Date: 20180213
  Receipt Date: 20181126
  Transmission Date: 20190204
  Serious: No
  Sender: FDA-Public Use
  Company Number: US-PFIZER INC-2018062660

PATIENT
  Age: 4 Year
  Sex: Female
  Weight: 15 kg

DRUGS (3)
  1. GENOTROPIN MQ [Suspect]
     Active Substance: SOMATROPIN
     Dosage: 1 MG, ALTERNATE DAY (0.8MG AND 1MG ALTERNATING DOSES, 7 DAYS A WEEK)
     Dates: start: 20150428
  2. GENOTROPIN MQ [Suspect]
     Active Substance: SOMATROPIN
     Dosage: 0.6 MG, DAILY (0.28MG/KG/WEEK)
     Route: 058
     Dates: start: 2015
  3. GENOTROPIN MQ [Suspect]
     Active Substance: SOMATROPIN
     Dosage: 0.8 MG, ALTERNATE DAY(0.8MG AND 1MG ALTERNATING DOSES, 7 DAYS A WEEK)
     Dates: start: 20150428

REACTIONS (3)
  - Bilateral breast buds [Recovered/Resolved]
  - Headache [Unknown]
  - Vomiting [Unknown]

NARRATIVE: CASE EVENT DATE: 2015
